FAERS Safety Report 5906630-X (Version None)
Quarter: 2008Q4

REPORT INFORMATION
  Report Type: 
  Country: None (occurrence: None)
  Receive Date: 20081002
  Receipt Date: 20080922
  Transmission Date: 20090506
  Serious: Yes (Hospitalization, Other)
  Sender: FDA-Public Use
  Company Number: US-ELI_LILLY_AND_COMPANY-US200806002823

PATIENT
  Age: 49 Year
  Sex: Female

DRUGS (10)
  1. FORTEO [Suspect]
     Indication: OSTEOPOROSIS
     Dates: start: 20080509
  2. OMEPRAZOLE [Concomitant]
     Indication: GASTROINTESTINAL DISORDER
     Dosage: 2 UNK, DAILY (1/D)
  3. ACETAMINOPHEN [Concomitant]
     Dosage: 325 MG, AS NEEDED
  4. AMLODIPINE BESYLATE [Concomitant]
     Dosage: 5 MG, DAILY (1/D)
  5. HYDROXYCHLOROQUINE SULFATE [Concomitant]
     Dosage: 200 MG, 2/D
  6. LEVOTHYROXINE SODIUM [Concomitant]
     Dosage: 150 UG, DAILY (1/D)
  7. PAROXETINE HYDROCHLORIDE [Concomitant]
     Dosage: 20 MG, DAILY (1/D)
  8. PREDNISONE [Concomitant]
     Dosage: 7.5 MG, DAILY (1/D)
  9. PREDNISONE [Concomitant]
     Dosage: 5 MG, DAILY (1/D)
  10. RITUXAN [Concomitant]
     Route: 042

REACTIONS (2)
  - GASTRITIS EROSIVE [None]
  - GASTROINTESTINAL HAEMORRHAGE [None]
